FAERS Safety Report 12620029 (Version 2)
Quarter: 2016Q3

REPORT INFORMATION
  Report Type: Spontaneous
  Country: IT (occurrence: IT)
  Receive Date: 20160803
  Receipt Date: 20160808
  Transmission Date: 20161109
  Serious: Yes (Hospitalization)
  Sender: FDA-Public Use
  Company Number: IT-SA-2016SA140090

PATIENT
  Age: 43 Year
  Sex: Male
  Weight: 66 kg

DRUGS (5)
  1. RIFADIN [Concomitant]
     Active Substance: RIFAMPIN
     Dates: start: 20070302, end: 20070402
  2. NICOZID [Concomitant]
     Active Substance: ISONIAZID
     Dates: start: 20070302, end: 20070402
  3. RIFATER [Suspect]
     Active Substance: ISONIAZID\PYRAZINAMIDE\RIFAMPIN
     Indication: DISSEMINATED TUBERCULOSIS
     Dosage: DOSE:6 UNIT(S)
     Route: 048
     Dates: start: 20070402, end: 20070426
  4. ETAPIAM [Suspect]
     Active Substance: ETHAMBUTOL HYDROCHLORIDE
     Indication: DISSEMINATED TUBERCULOSIS
     Route: 048
     Dates: start: 20070302, end: 20070426
  5. PIRALDINA [Concomitant]
     Active Substance: PYRAZINAMIDE
     Dates: start: 20070302, end: 20070402

REACTIONS (3)
  - Hepatitis acute [Recovering/Resolving]
  - Hepatic encephalopathy [Recovering/Resolving]
  - Acute hepatic failure [Recovering/Resolving]

NARRATIVE: CASE EVENT DATE: 20070426
